FAERS Safety Report 20072790 (Version 3)
Quarter: 2021Q4

REPORT INFORMATION
  Report Type: Other
  Country: US (occurrence: None)
  Receive Date: 20211116
  Receipt Date: 20211130
  Transmission Date: 20220303
  Serious: Yes (Hospitalization)
  Sender: FDA-Public Use
  Company Number: US-ROCHE-2952355

PATIENT
  Age: 45 Year
  Sex: Male
  Weight: 61.744 kg

DRUGS (3)
  1. XELODA [Suspect]
     Active Substance: CAPECITABINE
     Indication: Oesophageal carcinoma
     Dosage: 2ND, AND 3RD CYCLES; 14 DAYS ON, 7 DAYS OFF FOR 21 DAY CYCLES.
     Route: 048
  2. XELODA [Suspect]
     Active Substance: CAPECITABINE
     Dosage: 1ST CYCLE: 14 DAYS ON, 7 DAYS OFF
     Route: 048
  3. CARAFATE [Concomitant]
     Active Substance: SUCRALFATE

REACTIONS (4)
  - Pneumonia [Recovered/Resolved]
  - Candida infection [Recovered/Resolved]
  - Hepatic enzyme increased [Recovered/Resolved]
  - Off label use [Unknown]

NARRATIVE: CASE EVENT DATE: 20210901
